FAERS Safety Report 6104594-X (Version None)
Quarter: 2009Q1

REPORT INFORMATION
  Report Type: 
  Country: None (occurrence: None)
  Receive Date: 20090305
  Receipt Date: 20090225
  Transmission Date: 20090719
  Serious: Yes (Other)
  Sender: FDA-Public Use
  Company Number: DE-MERCK-0809DEU00012

PATIENT
  Age: 39 Year
  Sex: Female

DRUGS (2)
  1. COSOPT [Suspect]
     Route: 047
     Dates: end: 20080902
  2. INSULIN [Concomitant]
     Route: 058

REACTIONS (4)
  - DIABETES MELLITUS INADEQUATE CONTROL [None]
  - DRUG EXPOSURE DURING PREGNANCY [None]
  - OEDEMA [None]
  - PREGNANCY INDUCED HYPERTENSION [None]
